FAERS Safety Report 5507564-5 (Version None)
Quarter: 2007Q4

REPORT INFORMATION
  Report Type: 
  Country: None (occurrence: None)
  Receive Date: 20071106
  Receipt Date: 20071025
  Transmission Date: 20080405
  Serious: Yes (Death, Other)
  Sender: FDA-Public Use
  Company Number: JP-ROCHE-509163

PATIENT
  Age: 23 Year
  Sex: Male
  Weight: 51 kg

DRUGS (19)
  1. CELLCEPT [Suspect]
     Route: 048
     Dates: start: 20031023, end: 20031023
  2. CELLCEPT [Suspect]
     Route: 048
     Dates: start: 20031024, end: 20031117
  3. PROGRAF [Suspect]
     Route: 048
     Dates: start: 20031019, end: 20031020
  4. PROGRAF [Suspect]
     Route: 048
     Dates: start: 20031103, end: 20031109
  5. PROGRAF [Suspect]
     Route: 048
     Dates: start: 20031110, end: 20031115
  6. PROGRAF [Suspect]
     Route: 048
     Dates: start: 20031116, end: 20031119
  7. SIMULECT [Suspect]
     Route: 041
     Dates: start: 20031021, end: 20031021
  8. SIMULECT [Suspect]
     Route: 041
     Dates: start: 20031025, end: 20031025
  9. BREDININ [Suspect]
     Route: 048
     Dates: start: 20031118, end: 20031121
  10. SOLU-MEDROL [Suspect]
     Dosage: ROUTE: INTRAVENOUS DRIP. ADDITIONAL INDICATIONS: REJECTION ACUTE RENAL; BONE MARROW FAILURE; PULMON+
     Route: 042
     Dates: start: 20031021, end: 20031022
  11. SOLU-MEDROL [Suspect]
     Dosage: ROUTE: INTRAVENOUS (NOT OTHERWISE SPECIFIED).
     Route: 042
     Dates: start: 20031123, end: 20031124
  12. SOLU-MEDROL [Suspect]
     Dosage: ROUTE: INTRAVENOUS (NOT OTHERWISE SPECIFIED).
     Route: 042
     Dates: start: 20031209, end: 20031210
  13. MEDROL [Suspect]
     Route: 048
     Dates: start: 20031023, end: 20031120
  14. PREDONINE [Suspect]
     Route: 041
     Dates: start: 20031121, end: 20031130
  15. PREDONINE [Suspect]
     Route: 041
     Dates: start: 20031201, end: 20031201
  16. PREDONINE [Suspect]
     Route: 041
     Dates: start: 20031202, end: 20031203
  17. PREDONINE [Suspect]
     Route: 041
     Dates: start: 20031204, end: 20031204
  18. SANDIMMUNE [Concomitant]
     Route: 041
     Dates: start: 20031129, end: 20031204
  19. HORMONE [Concomitant]
     Dosage: REPORTED AS ADRENAL HORMONE PREPARATION

REACTIONS (7)
  - BONE MARROW DISORDER [None]
  - EPSTEIN-BARR VIRUS INFECTION [None]
  - GASTROINTESTINAL HAEMORRHAGE [None]
  - HISTIOCYTOSIS HAEMATOPHAGIC [None]
  - MULTI-ORGAN FAILURE [None]
  - SEPSIS [None]
  - SMALL INTESTINE ULCER [None]
